FAERS Safety Report 22300022 (Version 8)
Quarter: 2025Q4

REPORT INFORMATION
  Report Type: Spontaneous
  Country: CA (occurrence: CA)
  Receive Date: 20230509
  Receipt Date: 20251027
  Transmission Date: 20260117
  Serious: Yes (Hospitalization, Other)
  Sender: PFIZER
  Company Number: CA-PFIZER INC-202200643931

PATIENT
  Age: 77 Year
  Sex: Female

DRUGS (5)
  1. RUXIENCE [Suspect]
     Active Substance: RITUXIMAB-PVVR
     Indication: Rheumatoid arthritis
     Dosage: 1000 MG, EVERY 6 MONTHS
     Route: 042
     Dates: start: 20220803
  2. RUXIENCE [Suspect]
     Active Substance: RITUXIMAB-PVVR
     Dosage: 1000 MG, EVERY 6 MONTHS
     Route: 042
     Dates: start: 20240312
  3. RUXIENCE [Suspect]
     Active Substance: RITUXIMAB-PVVR
     Dosage: 500 MG, DAY 1 (RETREATMENT) (EVERY 6 MONTH)
     Route: 042
     Dates: start: 20240911, end: 20240911
  4. RUXIENCE [Suspect]
     Active Substance: RITUXIMAB-PVVR
     Dosage: 500 MG, RETREATMENT (EVERY 6 MONTHS)
     Route: 042
     Dates: start: 20250318
  5. RUXIENCE [Suspect]
     Active Substance: RITUXIMAB-PVVR
     Dosage: 500 MG, SUBSEQUENT DAY 1 (EVERY 6 MONTHS)
     Route: 042
     Dates: start: 20251023

REACTIONS (10)
  - Knee arthroplasty [Unknown]
  - Hip surgery [Unknown]
  - Rheumatoid arthritis [Recovering/Resolving]
  - Wound infection [Not Recovered/Not Resolved]
  - Accident [Unknown]
  - Anxiety [Unknown]
  - Off label use [Unknown]
  - Off label use [Unknown]
  - Off label use [Unknown]
  - Intentional product use issue [Unknown]

NARRATIVE: CASE EVENT DATE: 20220803
